FAERS Safety Report 19088484 (Version 1)
Quarter: 2021Q2

REPORT INFORMATION
  Report Type: Spontaneous
  Country: US (occurrence: US)
  Receive Date: 20210402
  Receipt Date: 20210402
  Transmission Date: 20210717
  Serious: No
  Sender: FDA-Public Use
  Company Number: US-BAUSCH-BL-2021-007364

PATIENT
  Age: 77 Year
  Sex: Male

DRUGS (4)
  1. TOBRAMYCIN AND DEXAMETHASONE [Suspect]
     Active Substance: DEXAMETHASONE\TOBRAMYCIN
     Indication: CONJUNCTIVITIS ALLERGIC
     Route: 047
     Dates: start: 20201208, end: 202012
  2. TOBRAMYCIN AND DEXAMETHASONE [Suspect]
     Active Substance: DEXAMETHASONE\TOBRAMYCIN
     Route: 047
     Dates: start: 20210111, end: 202101
  3. SYSTANE LUBRICANT [Concomitant]
     Active Substance: POLYETHYLENE GLYCOL 400\PROPYLENE GLYCOL
     Indication: PRODUCT USED FOR UNKNOWN INDICATION
     Dosage: AS NEEDED
  4. TOBRAMYCIN AND DEXAMETHASONE [Suspect]
     Active Substance: DEXAMETHASONE\TOBRAMYCIN
     Route: 047
     Dates: start: 20210204

REACTIONS (2)
  - Symptom recurrence [Not Recovered/Not Resolved]
  - Conjunctivitis allergic [Not Recovered/Not Resolved]

NARRATIVE: CASE EVENT DATE: 202012
